FAERS Safety Report 24567345 (Version 4)
Quarter: 2025Q2

REPORT INFORMATION
  Report Type: Report from Study
  Country: US (occurrence: US)
  Receive Date: 20241030
  Receipt Date: 20250618
  Transmission Date: 20250716
  Serious: No
  Sender: SUNOVION
  Company Number: US-SUMITOMO PHARMA SWITZERLAND GMBH-2024SPA004524

PATIENT

DRUGS (12)
  1. ORGOVYX [Suspect]
     Active Substance: RELUGOLIX
     Indication: Prostate cancer
     Dosage: 360 MG, SINGLE
     Route: 048
  2. ORGOVYX [Suspect]
     Active Substance: RELUGOLIX
     Dosage: 120 MG, QD
     Route: 048
     Dates: start: 202409
  3. ATORVASTATIN [Concomitant]
     Active Substance: ATORVASTATIN
     Route: 065
  4. AZELASTINE [Concomitant]
     Active Substance: AZELASTINE
     Route: 065
  5. CIALIS [Concomitant]
     Active Substance: TADALAFIL
     Route: 065
  6. FLUTICASONE [Concomitant]
     Active Substance: FLUTICASONE
     Route: 065
  7. LEVOFLOXACIN [Concomitant]
     Active Substance: LEVOFLOXACIN
     Route: 065
  8. LEVOTHYROXINE [Concomitant]
     Active Substance: LEVOTHYROXINE
     Route: 065
  9. TADALAFIL [Concomitant]
     Active Substance: TADALAFIL
     Route: 065
  10. XANAX [Concomitant]
     Active Substance: ALPRAZOLAM
     Route: 065
  11. ABIRATERONE [Concomitant]
     Active Substance: ABIRATERONE
     Route: 065
  12. PREDNISONE [Concomitant]
     Active Substance: PREDNISONE
     Route: 065

REACTIONS (3)
  - Diarrhoea [Unknown]
  - Hot flush [Unknown]
  - Fatigue [Unknown]
